FAERS Safety Report 6830316-0 (Version None)
Quarter: 2010Q3

REPORT INFORMATION
  Report Type: 
  Country: None (occurrence: None)
  Receive Date: 20100712
  Receipt Date: 20100702
  Transmission Date: 20110219
  Serious: Yes (Hospitalization)
  Sender: FDA-Public Use
  Company Number: US-BIOGENIDEC-2010BI022777

PATIENT
  Age: 67 Year
  Sex: Female

DRUGS (3)
  1. AVONEX [Suspect]
     Indication: MULTIPLE SCLEROSIS
     Route: 030
     Dates: start: 20030331, end: 20040320
  2. AVONEX [Suspect]
     Route: 030
     Dates: start: 20090315
  3. LIPITOR [Concomitant]

REACTIONS (2)
  - FOOT FRACTURE [None]
  - LIVER FUNCTION TEST ABNORMAL [None]
